FAERS Safety Report 18468123 (Version 1)
Quarter: 2020Q4

REPORT INFORMATION
  Report Type: Spontaneous
  Country: US (occurrence: US)
  Receive Date: 20201104
  Receipt Date: 20201104
  Transmission Date: 20210114
  Serious: Yes (Other)
  Sender: FDA-Public Use
  Company Number: None

PATIENT
  Age: 85 Year
  Sex: Male
  Weight: 80.06 kg

DRUGS (13)
  1. MULTIVITAMINS ORAL DAILY [Concomitant]
  2. NIACIN 500 MG ORAL DAILY [Concomitant]
  3. SYNTHROID 88 MCG ORAL DAILY [Concomitant]
  4. RESTASIS 0.05 % OP Q12H [Concomitant]
  5. CALCIUM ACETATE ORAL DAILY [Concomitant]
  6. OMEPRAZOLE 20 MG ORAL DAILY [Concomitant]
  7. VITAMIN B12, B6, E [Concomitant]
  8. CAPECITABINE. [Suspect]
     Active Substance: CAPECITABINE
     Indication: APPENDIX CANCER
     Route: 048
     Dates: start: 20201020
  9. ALPRAZOLAM 0.5 MG ORAL DAILY [Concomitant]
  10. OMEGA 3 ORAL DAILY [Concomitant]
  11. AMITZA 24 MCG ORAL BID [Concomitant]
  12. VIAGRA 100 MG ORAL DAILY [Concomitant]
  13. ZINC GLUCONATE 30 MG ORAL [Concomitant]

REACTIONS (2)
  - Diarrhoea [None]
  - Abdominal discomfort [None]

NARRATIVE: CASE EVENT DATE: 20201029
